FAERS Safety Report 9922841 (Version 1)
Quarter: 2014Q1

REPORT INFORMATION
  Report Type: Spontaneous
  Country: US (occurrence: US)
  Receive Date: 20140225
  Receipt Date: 20140225
  Transmission Date: 20141002
  Serious: Yes (Hospitalization)
  Sender: FDA-Public Use
  Company Number: US-ASTRAZENECA-2014SE11265

PATIENT
  Age: 18 Month
  Sex: Female
  Weight: 7.8 kg

DRUGS (5)
  1. SYNAGIS [Suspect]
     Indication: PREMATURE BABY
     Dosage: 100 MG AND 50 MG, 15 MG/KG ONCE MONTHLY
     Route: 030
     Dates: start: 20131118, end: 20140121
  2. SYNAGIS [Suspect]
     Indication: PREMATURE BABY
     Dosage: 100 MG AND 50 MG, 15 MG/KG ONCE MONTHLY
     Route: 030
     Dates: start: 20140121, end: 20140121
  3. FLOVENT [Concomitant]
     Dosage: 1 PUFF TWO TIMES A DAY
  4. ALBUTEROL NEBULIZERS [Concomitant]
     Dosage: EVERY 3-4 HOURS AS NEEDED
  5. FAMOTIDINE [Concomitant]
     Indication: GASTROOESOPHAGEAL REFLUX DISEASE
     Dosage: DAILY

REACTIONS (5)
  - Apnoeic attack [Unknown]
  - Adverse drug reaction [Unknown]
  - Ear infection [Unknown]
  - Cough [Unknown]
  - Constipation [Unknown]
